FAERS Safety Report 22945586 (Version 3)
Quarter: 2025Q1

REPORT INFORMATION
  Report Type: Spontaneous
  Country: IN (occurrence: IN)
  Receive Date: 20230914
  Receipt Date: 20250214
  Transmission Date: 20250408
  Serious: Yes (Death, Hospitalization, Other)
  Sender: MERCK SHARP & DOHME LLC
  Company Number: IN-009507513-2309IND002785

PATIENT
  Age: 69 Year
  Sex: Male

DRUGS (1)
  1. KEYTRUDA [Suspect]
     Active Substance: PEMBROLIZUMAB
     Indication: Non-small cell lung cancer
     Dates: end: 20230704

REACTIONS (12)
  - Pericardial effusion [Fatal]
  - Multiple organ dysfunction syndrome [Fatal]
  - Sepsis [Fatal]
  - Anuria [Unknown]
  - Ventricular tachycardia [Unknown]
  - Bradycardia [Unknown]
  - Cardiac arrest [Unknown]
  - Pleural effusion [Unknown]
  - Cardiomegaly [Unknown]
  - General physical health deterioration [Unknown]
  - Hypotension [Unknown]
  - Blood lactic acid decreased [Unknown]

NARRATIVE: CASE EVENT DATE: 20230704
